FAERS Safety Report 10695628 (Version 1)
Quarter: 2015Q1

REPORT INFORMATION
  Report Type: Spontaneous
  Country: US (occurrence: None)
  Receive Date: 20150106
  Receipt Date: 20150106
  Transmission Date: 20150721
  Serious: No
  Sender: FDA-Public Use
  Company Number: None

PATIENT
  Age: 57 Year
  Sex: Female
  Weight: 117.94 kg

DRUGS (1)
  1. METHAMPHETAMIN [Suspect]
     Active Substance: METHAMPHETAMINE
     Indication: SOMNOLENCE
     Dosage: 4
     Route: 048

REACTIONS (2)
  - Product substitution issue [None]
  - Sleep attacks [None]

NARRATIVE: CASE EVENT DATE: 20150105
